FAERS Safety Report 24449200 (Version 1)
Quarter: 2024Q4

REPORT INFORMATION
  Report Type: Spontaneous
  Country: JP (occurrence: JP)
  Receive Date: 20241017
  Receipt Date: 20241017
  Transmission Date: 20250115
  Serious: Yes (Hospitalization, Other)
  Sender: AMGEN
  Company Number: JP-AMGEN-JPNSP2024172200

PATIENT
  Sex: Female

DRUGS (12)
  1. BLINCYTO [Suspect]
     Active Substance: BLINATUMOMAB
     Indication: Acute lymphocytic leukaemia
     Dosage: 9 MICROGRAM, QD, FOR 14 DAYS, DRIP INFUSION
     Route: 042
     Dates: start: 20240815, end: 20240903
  2. MIYA-BM [Concomitant]
     Active Substance: CLOSTRIDIUM BUTYRICUM SPORES STRAIN M-55
     Dosage: 1 DOSAGE FORM (TABLET) AT A TIME
  3. CORTRIL [Concomitant]
     Active Substance: HYDROCORTISONE
     Dosage: 10 MILLIGRAM 1 TABLET AT A TIME
  4. ZYPREXA [Concomitant]
     Active Substance: OLANZAPINE
     Dosage: 2.5 MILLIGRAM 1 TABLET AT TIME
  5. URSODIOL [Concomitant]
     Active Substance: URSODIOL
     Dosage: 100 MILLIGRAM, 1 TABLET AT A TIME
  6. GASTER [Concomitant]
     Active Substance: FAMOTIDINE
     Dosage: 10 MILLIGRAM, 1 TABLEY AT A TIME
  7. ATOVAQUONE [Concomitant]
     Active Substance: ATOVAQUONE
     Dosage: UNK, 2 PACKS AT A TIME
     Route: 048
  8. FAMVIR [Concomitant]
     Active Substance: FAMCICLOVIR
     Dosage: 250 MILLIGRAM, 1 TABLET AT A TIME
  9. FLUCONAZOLE [Concomitant]
     Active Substance: FLUCONAZOLE
     Dosage: 1100 MILLIGRAM, 2 CAPSULES AT A TIME
  10. MAGNESIUM OXIDE [Concomitant]
     Active Substance: MAGNESIUM OXIDE
     Dosage: 250 MILLIGRAM, 1 TABLET AT A TIME
  11. AMLODIPINE [Concomitant]
     Active Substance: AMLODIPINE BESYLATE
     Dosage: 5 MILLIGRAM, 1 TABLET AT A TIME
  12. SOLU-MEDROL [Concomitant]
     Active Substance: METHYLPREDNISOLONE SODIUM SUCCINATE
     Dosage: UNK

REACTIONS (6)
  - Pseudomonal bacteraemia [Recovering/Resolving]
  - Lung adenocarcinoma recurrent [Unknown]
  - Cytokine release syndrome [Unknown]
  - Ascites [Unknown]
  - Pleural effusion [Unknown]
  - Hypertension [Unknown]

NARRATIVE: CASE EVENT DATE: 20240821
